FAERS Safety Report 18261786 (Version 1)
Quarter: 2020Q3

REPORT INFORMATION
  Report Type: Spontaneous
  Country: US (occurrence: US)
  Receive Date: 20200913
  Receipt Date: 20200913
  Transmission Date: 20201103
  Serious: No
  Sender: FDA-Public Use
  Company Number: None

PATIENT
  Age: 60 Year
  Sex: Male
  Weight: 92.25 kg

DRUGS (6)
  1. ZINC. [Concomitant]
     Active Substance: ZINC
  2. PROLENSA [Concomitant]
     Active Substance: BROMFENAC SODIUM
  3. MULTI?VITAMIN [Concomitant]
     Active Substance: .ALPHA.-TOCOPHEROL ACETATE, DL-\ASCORBIC ACID\CYANOCOBALAMIN\FLUORIDE ION\FOLIC ACID\NIACIN\PYRIDOXINE\RIBOFLAVIN\THIAMINE\VITAMIN A\VITAMIN D
  4. CALCIUM SUPPLEMENT [Concomitant]
     Active Substance: CALCIUM
  5. GOLD BOND ULTIMATE ECZEMA RELIEF [Suspect]
     Active Substance: OATMEAL
     Indication: ECZEMA
     Route: 061
     Dates: start: 20200910, end: 20200912
  6. DORZOLAMIDE HCL/TIMOLOL [Concomitant]

REACTIONS (4)
  - Rash [None]
  - Urticaria [None]
  - Application site rash [None]
  - Suspected product quality issue [None]

NARRATIVE: CASE EVENT DATE: 20200911
